FAERS Safety Report 6719871-9 (Version None)
Quarter: 2010Q2

REPORT INFORMATION
  Report Type: 
  Country: None (occurrence: None)
  Receive Date: 20100511
  Receipt Date: 20100504
  Transmission Date: 20101027
  Serious: Yes (Hospitalization)
  Sender: FDA-Public Use
  Company Number: GB-AMGEN-KDC410130

PATIENT
  Sex: Female

DRUGS (12)
  1. NEULASTA [Suspect]
     Indication: CHEMOTHERAPY
     Route: 058
     Dates: start: 20100304
  2. RITUXIMAB [Suspect]
     Route: 042
     Dates: start: 20100304
  3. CYCLOPHOSPHAMIDE [Suspect]
     Route: 042
     Dates: start: 20100304
  4. GEMCITABINE HCL [Suspect]
     Route: 042
     Dates: start: 20100304
  5. VINCRISTINE SULFATE [Suspect]
     Route: 042
     Dates: start: 20100304
  6. PREDNISOLONE [Suspect]
     Route: 048
     Dates: start: 20100304
  7. OMEPRAZOLE [Concomitant]
  8. CANDESARTAN [Concomitant]
  9. SIMVASTATIN [Concomitant]
  10. VERAPAMIL [Concomitant]
  11. ORAL ANTICOAGULANT NOS [Concomitant]
  12. DIURETICS [Concomitant]

REACTIONS (2)
  - ANAEMIA [None]
  - NEUTROPENIA [None]
